FAERS Safety Report 7476889-9 (Version None)
Quarter: 2011Q2

REPORT INFORMATION
  Report Type: 
  Country: None (occurrence: None)
  Receive Date: 20110512
  Receipt Date: 20101227
  Transmission Date: 20111010
  Serious: Yes (Other)
  Sender: FDA-Public Use
  Company Number: US-BAYER-201033885NA

PATIENT
  Age: 28 Year
  Sex: Female
  Weight: 73.469 kg

DRUGS (10)
  1. YASMIN [Suspect]
     Indication: CONTRACEPTION
     Dosage: UNK
     Route: 048
     Dates: start: 20000101, end: 20100101
  2. YASMIN [Suspect]
     Dosage: UNK
     Dates: start: 20020301, end: 20070401
  3. MECLIZINE [Concomitant]
     Dosage: 12.5 UNK, UNK
     Route: 048
     Dates: start: 20060101
  4. AMBIEN [Concomitant]
     Dosage: 10 UNK, UNK
     Route: 048
     Dates: start: 20060201
  5. DROSPIRENONE AND ETHINYL ESTRADIOL [Suspect]
     Indication: CONTRACEPTION
     Dosage: UNK
     Route: 048
     Dates: start: 20000101, end: 20100101
  6. METHYLPREDNISOLONE ACETATE [Concomitant]
     Dosage: 4 UNK, UNK
     Route: 048
     Dates: start: 20060101
  7. IBUPROFEN [Concomitant]
     Dosage: 600 MG, PRN
     Dates: start: 20070228
  8. DROSPIRENONE AND ETHINYL ESTRADIOL [Suspect]
     Dosage: UNK
     Dates: start: 20020301, end: 20070401
  9. WELLBUTRIN [Concomitant]
     Dosage: 150 MG, UNK
     Route: 048
     Dates: start: 20060101
  10. YAZ [Suspect]
     Indication: PRODUCT USED FOR UNKNOWN INDICATION
     Route: 048

REACTIONS (3)
  - CHOLELITHIASIS [None]
  - CHOLECYSTITIS CHRONIC [None]
  - ABDOMINAL PAIN UPPER [None]
